FAERS Safety Report 8839931 (Version 2)
Quarter: 2012Q4

REPORT INFORMATION
  Report Type: 
  Country: BR (occurrence: BR)
  Receive Date: 20121015
  Receipt Date: 20121127
  Transmission Date: 20130627
  Serious: Yes (Other)
  Sender: FDA-Public Use
  Company Number: PHHY2012BR088882

PATIENT
  Sex: Male

DRUGS (2)
  1. OLCADIL [Suspect]
     Dosage: 04 mg, 02 tablets at breakfast and 02 tablets in the afternoon
  2. RITALIN [Suspect]
     Indication: ATTENTION DEFICIT/HYPERACTIVITY DISORDER
     Dosage: 10 mg (02 tablets on the breakfast and 02 tablets in the afternoon)

REACTIONS (9)
  - Syncope [Recovered/Resolved]
  - Muscular weakness [Recovered/Resolved]
  - Viral infection [Recovered/Resolved]
  - Sleep disorder [Recovered/Resolved]
  - Decreased appetite [Recovered/Resolved]
  - Dizziness [Recovered/Resolved]
  - Wrong drug administered [Recovered/Resolved]
  - Malaise [Recovered/Resolved]
  - Somnolence [Recovered/Resolved]
